FAERS Safety Report 18027102 (Version 1)
Quarter: 2020Q3

REPORT INFORMATION
  Report Type: Spontaneous
  Country: TR (occurrence: TR)
  Receive Date: 20200715
  Receipt Date: 20200715
  Transmission Date: 20201103
  Serious: Yes (Other)
  Sender: FDA-Public Use
  Company Number: TR-AMGEN-TURSP2020108729

PATIENT
  Age: 40 Year
  Sex: Male

DRUGS (5)
  1. RITUXIMAB. [Suspect]
     Active Substance: RITUXIMAB
     Indication: IMMUNE THROMBOCYTOPENIA
     Dosage: 375 MILLIGRAM PER CUBIC METRE, QWK
     Route: 065
     Dates: start: 20180630
  2. ROMIPLOSTIM [Suspect]
     Active Substance: ROMIPLOSTIM
     Dosage: 6 MICROGRAM/KILOGRAM, QWK
     Route: 065
     Dates: start: 20180629, end: 20180706
  3. ROMIPLOSTIM [Suspect]
     Active Substance: ROMIPLOSTIM
     Dosage: 4 MICROGRAM/KILOGRAM, QWK
     Route: 065
     Dates: start: 20180522
  4. ROMIPLOSTIM [Suspect]
     Active Substance: ROMIPLOSTIM
     Dosage: 6 MICROGRAM/KILOGRAM, QWK
     Route: 065
     Dates: start: 20180725, end: 2018
  5. ROMIPLOSTIM [Suspect]
     Active Substance: ROMIPLOSTIM
     Indication: IMMUNE THROMBOCYTOPENIA
     Dosage: 2 MICROGRAM/KILOGRAM, QWK
     Route: 065
     Dates: start: 20180510, end: 201805

REACTIONS (7)
  - Drug ineffective [Unknown]
  - Hyperplasia [Unknown]
  - Bone pain [Unknown]
  - Back pain [Unknown]
  - Pain in extremity [Unknown]
  - Arthralgia [Unknown]
  - Chest pain [Unknown]

NARRATIVE: CASE EVENT DATE: 2018
